FAERS Safety Report 20661109 (Version 2)
Quarter: 2022Q4

REPORT INFORMATION
  Report Type: Spontaneous
  Country: US (occurrence: US)
  Receive Date: 20220331
  Receipt Date: 20221207
  Transmission Date: 20230113
  Serious: Yes (Other)
  Sender: FDA-Public Use
  Company Number: US-BRISTOL-MYERS SQUIBB COMPANY-2022-010050

PATIENT
  Age: 74 Year
  Sex: Male
  Weight: 101.6 kg

DRUGS (1)
  1. POMALYST [Suspect]
     Active Substance: POMALIDOMIDE
     Indication: Plasma cell myeloma
     Dosage: 2 MG,QD, 21 D ON 7 DAYS OFF
     Route: 048
     Dates: start: 20211201

REACTIONS (1)
  - Renal disorder [Unknown]
